FAERS Safety Report 8395306-8 (Version None)
Quarter: 2012Q2

REPORT INFORMATION
  Report Type: 
  Country: None (occurrence: None)
  Receive Date: 20120530
  Receipt Date: 20120522
  Transmission Date: 20120825
  Serious: No
  Sender: FDA-Public Use
  Company Number: US-UCBSA-015072

PATIENT
  Age: 64 Year
  Sex: Male
  Weight: 95.25 kg

DRUGS (15)
  1. KEPPRA [Suspect]
     Dosage: STRENGHT 500 MG
     Route: 048
  2. KEPPRA XR [Suspect]
     Indication: CONVULSION
     Dosage: 1500MG IN AM, 1500 MG IN PM
     Route: 048
     Dates: start: 20050101, end: 20050101
  3. KEPPRA [Suspect]
     Indication: EPILEPSY
     Dosage: FORM STRENGTH: 500 MG; 1500MG IN AM, 1500MG IN PM
     Route: 048
     Dates: start: 20050101, end: 20101201
  4. ATENOLOL [Concomitant]
     Indication: HYPERTENSION
     Route: 048
  5. CLONAZEPAM [Concomitant]
     Indication: CONVULSION
     Route: 048
  6. CHOLESTEROL PILL [Concomitant]
     Indication: BLOOD CHOLESTEROL INCREASED
     Route: 048
  7. KEPPRA [Suspect]
     Indication: CONVULSION
     Dosage: FORM STRENGTH: 500 MG; 1500MG IN AM, 1500MG IN PM
     Route: 048
     Dates: start: 20050101, end: 20101201
  8. KEPPRA [Suspect]
     Dosage: STRENGHT 500 MG
     Route: 048
  9. DILANTAIN [Concomitant]
     Indication: CONVULSION
     Dosage: FROM LAST 60 YEARS, TOTAL DAILY DOSE 5 PILLS AM,5 PILLS PM.
     Route: 048
  10. SLEEPING PILL [Concomitant]
     Indication: SLEEP DISORDER
     Route: 048
  11. TRIAMTERENE AND HYDROCHLOROTHIAZIDE [Concomitant]
     Indication: DIURETIC THERAPY
     Route: 048
  12. REFLUX PILL [Concomitant]
     Indication: REFLUX GASTRITIS
     Route: 048
  13. LEVETIRACETAM [Suspect]
     Indication: EPILEPSY
     Dosage: 1500MG IN AM, 1500MG IN PM-GENERIC LEVETIRACETAM
     Route: 048
     Dates: start: 20101201
  14. LEVETIRACETAM [Suspect]
     Indication: CONVULSION
     Dosage: 1500MG IN AM, 1500MG IN PM-GENERIC LEVETIRACETAM
     Route: 048
     Dates: start: 20101201
  15. LORAZEPAM [Concomitant]
     Indication: CONVULSION
     Route: 048

REACTIONS (5)
  - GRAND MAL CONVULSION [None]
  - GINGIVITIS [None]
  - INAPPROPRIATE SCHEDULE OF DRUG ADMINISTRATION [None]
  - SOMNOLENCE [None]
  - FEELING ABNORMAL [None]
